FAERS Safety Report 20886491 (Version 1)
Quarter: 2022Q2

REPORT INFORMATION
  Report Type: Spontaneous
  Country: US (occurrence: US)
  Receive Date: 20220527
  Receipt Date: 20220527
  Transmission Date: 20220721
  Serious: Yes (Hospitalization)
  Sender: FDA-Public Use
  Company Number: US-NOVARTISPH-NVSC2022US118226

PATIENT
  Sex: Female

DRUGS (2)
  1. EXFORGE [Suspect]
     Active Substance: AMLODIPINE BESYLATE\VALSARTAN
     Indication: Product used for unknown indication
     Dosage: UNK UNK, QD
     Route: 065
  2. VALSARTAN [Suspect]
     Active Substance: VALSARTAN
     Indication: Product used for unknown indication
     Dosage: UNK UNK, QD
     Route: 065

REACTIONS (3)
  - Illness [Unknown]
  - Heart rate increased [Unknown]
  - Drug intolerance [Unknown]
